FAERS Safety Report 13254938 (Version 1)
Quarter: 2017Q1

REPORT INFORMATION
  Report Type: Spontaneous
  Country: US (occurrence: US)
  Receive Date: 20170217
  Receipt Date: 20170217
  Transmission Date: 20170428
  Serious: Yes (Death, Hospitalization)
  Sender: FDA-Public Use
  Company Number: None

PATIENT
  Age: 68 Year
  Sex: Female
  Weight: 88.65 kg

DRUGS (1)
  1. RECLAST [Suspect]
     Active Substance: ZOLEDRONIC ACID

REACTIONS (11)
  - Renal failure [None]
  - Stomatitis [None]
  - Rash [None]
  - White blood cell count decreased [None]
  - Somnolence [None]
  - Sepsis [None]
  - Haemodialysis [None]
  - Neutrophil count decreased [None]
  - Diarrhoea [None]
  - Feeding disorder [None]
  - Cardiac arrest [None]

NARRATIVE: CASE EVENT DATE: 20170206
